FAERS Safety Report 7921622-7 (Version None)
Quarter: 2011Q4

REPORT INFORMATION
  Report Type: 
  Country: None (occurrence: None)
  Receive Date: 20111117
  Receipt Date: 20110606
  Transmission Date: 20120403
  Serious: No
  Sender: FDA-Public Use
  Company Number: US-BRISTOL-MYERS SQUIBB COMPANY-15545478

PATIENT

DRUGS (2)
  1. ETOPOSIDE [Suspect]
  2. ETOPOPHOS PRESERVATIVE FREE [Suspect]
     Dates: start: 20110114, end: 20110207

REACTIONS (1)
  - MEDICATION ERROR [None]
